FAERS Safety Report 24731024 (Version 1)
Quarter: 2024Q4

REPORT INFORMATION
  Report Type: Spontaneous
  Country: US (occurrence: None)
  Receive Date: 20241212
  Receipt Date: 20241212
  Transmission Date: 20250115
  Serious: Yes (Hospitalization)
  Sender: Public
  Company Number: None

PATIENT
  Sex: Male

DRUGS (7)
  1. SYNAGIS [Suspect]
     Active Substance: PALIVIZUMAB
     Indication: Respiratory disorder
     Dosage: FREQ: INJECT 15 MG/ KG IN THE MUSCLE ONCE PER MONTH
     Route: 030
  2. CAPTOPRIL [Concomitant]
     Active Substance: CAPTOPRIL
  3. CARVEDILOL [Concomitant]
     Active Substance: CARVEDILOL
  4. CHLOROTHIAZ [Concomitant]
  5. FLUCONAZOLE [Concomitant]
     Active Substance: FLUCONAZOLE
  6. SIMETHICONE DRO [Concomitant]
  7. SOD BICARB [Concomitant]

REACTIONS (2)
  - Therapy interrupted [None]
  - Hospitalisation [None]
